FAERS Safety Report 8585351-1 (Version None)
Quarter: 2012Q3

REPORT INFORMATION
  Report Type: 
  Country: None (occurrence: None)
  Receive Date: 20120810
  Receipt Date: 20120808
  Transmission Date: 20120928
  Serious: Yes (Other)
  Sender: FDA-Public Use
  Company Number: US-PFIZER INC-2012194265

PATIENT
  Age: 51 Year
  Sex: Female
  Weight: 81.633 kg

DRUGS (3)
  1. ASPIRIN [Concomitant]
     Dosage: 81 MG, 1X/DAY
  2. ZYRTEC [Concomitant]
     Indication: HOUSE DUST ALLERGY
     Dosage: UNK
  3. PRISTIQ [Suspect]
     Indication: DEPRESSION
     Dosage: 50 MG, 1X/DAY
     Route: 048
     Dates: start: 20110101, end: 20120701

REACTIONS (7)
  - DEPRESSED MOOD [None]
  - NERVOUSNESS [None]
  - EATING DISORDER [None]
  - FEELINGS OF WORTHLESSNESS [None]
  - HYPERSOMNIA [None]
  - SLEEP DISORDER [None]
  - FEELING ABNORMAL [None]
